FAERS Safety Report 18137387 (Version 1)
Quarter: 2020Q3

REPORT INFORMATION
  Report Type: Report from Study
  Country: US (occurrence: US)
  Receive Date: 20200811
  Receipt Date: 20200811
  Transmission Date: 20201103
  Serious: No
  Sender: FDA-Public Use
  Company Number: NVSC2020US218304

PATIENT
  Sex: Female

DRUGS (1)
  1. RECLAST [Suspect]
     Active Substance: ZOLEDRONIC ACID
     Indication: METASTASES TO BONE
     Dosage: UNK
     Route: 065

REACTIONS (6)
  - Muscle atrophy [Unknown]
  - Chills [Unknown]
  - Hypertension [Unknown]
  - Nausea [Unknown]
  - Urticaria [Unknown]
  - Pain [Unknown]
